FAERS Safety Report 15320448 (Version 6)
Quarter: 2020Q4

REPORT INFORMATION
  Report Type: Spontaneous
  Country: US (occurrence: US)
  Receive Date: 20180827
  Receipt Date: 20201030
  Transmission Date: 20210113
  Serious: Yes (Other)
  Sender: FDA-Public Use
  Company Number: US-PFIZER INC-2018343841

PATIENT
  Age: 61 Year
  Sex: Female

DRUGS (1)
  1. LYRICA [Suspect]
     Active Substance: PREGABALIN
     Dosage: 50 MG

REACTIONS (8)
  - Breast cancer stage III [Unknown]
  - Migraine [Unknown]
  - Depressed mood [Unknown]
  - Pain [Unknown]
  - Feeling abnormal [Unknown]
  - Bradykinesia [Unknown]
  - Fear of injection [Unknown]
  - Hypoacusis [Unknown]

NARRATIVE: CASE EVENT DATE: 2014
